FAERS Safety Report 5089359-2 (Version None)
Quarter: 2006Q3

REPORT INFORMATION
  Report Type: 
  Country: None (occurrence: None)
  Receive Date: 20060822
  Receipt Date: 20060807
  Transmission Date: 20061208
  Serious: Yes (Hospitalization)
  Sender: FDA-Public Use
  Company Number: US200604001533

PATIENT
  Age: 74 Year
  Sex: Female
  Weight: 44 kg

DRUGS (6)
  1. FORTEO [Suspect]
     Indication: OSTEOPOROSIS
     Dosage: 20 UG,
     Dates: start: 20050401, end: 20060201
  2. FORTEO [Concomitant]
  3. LOTREL [Concomitant]
  4. EZETIMIBE (EZETIMIBE) [Concomitant]
  5. SIMVASTATIN [Concomitant]
  6. XALATAN /SWE/ (LATANOPROST) [Concomitant]

REACTIONS (3)
  - ANKLE FRACTURE [None]
  - FALL [None]
  - PHARMACEUTICAL PRODUCT COMPLAINT [None]
